FAERS Safety Report 25075807 (Version 1)
Quarter: 2025Q1

REPORT INFORMATION
  Report Type: Spontaneous
  Country: AR (occurrence: AR)
  Receive Date: 20250313
  Receipt Date: 20250313
  Transmission Date: 20250409
  Serious: Yes (Death)
  Sender: PFIZER
  Company Number: AR-PFIZER INC-202500055662

PATIENT
  Age: 66 Year
  Sex: Female

DRUGS (1)
  1. LORLATINIB [Suspect]
     Active Substance: LORLATINIB
     Indication: Lung cancer metastatic
     Dosage: 100 MG, 1X/DAY
     Dates: start: 20241001

REACTIONS (1)
  - Death [Fatal]

NARRATIVE: CASE EVENT DATE: 20250216
